FAERS Safety Report 14301550 (Version 1)
Quarter: 2017Q4

REPORT INFORMATION
  Report Type: Report from Study
  Country: FR (occurrence: FR)
  Receive Date: 20171219
  Receipt Date: 20171219
  Transmission Date: 20180321
  Serious: Yes (Hospitalization, Other)
  Sender: FDA-Public Use
  Company Number: FR-BRISTOL-MYERS SQUIBB COMPANY-BMS-2017-114990

PATIENT
  Age: 54 Year
  Sex: Male
  Weight: 84 kg

DRUGS (4)
  1. ADVAGRAF [Suspect]
     Active Substance: TACROLIMUS
     Indication: RENAL TRANSPLANT
     Dosage: 5 MG, QD
     Route: 065
  2. SOLUPRED                           /00016201/ [Suspect]
     Active Substance: PREDNISOLONE
     Indication: IMMUNOSUPPRESSION
     Dosage: 5 MG, QD
     Route: 065
  3. ENTECAVIR. [Suspect]
     Active Substance: ENTECAVIR
     Indication: HEPATITIS C VIRUS TEST
     Dosage: 0.5 MG, UNK
     Route: 065
     Dates: start: 20091027
  4. TRIATEC                            /00885601/ [Concomitant]
     Active Substance: RAMIPRIL
     Indication: HYPERTENSION
     Dosage: 5 MG, QD
     Route: 065

REACTIONS (6)
  - Anaemia [Unknown]
  - Prerenal failure [Recovering/Resolving]
  - Diarrhoea [Recovering/Resolving]
  - Hepatitis B reactivation [Unknown]
  - Pyrexia [Recovering/Resolving]
  - Transplant dysfunction [Unknown]

NARRATIVE: CASE EVENT DATE: 20150422
